FAERS Safety Report 13687838 (Version 4)
Quarter: 2017Q4

REPORT INFORMATION
  Report Type: Report from Study
  Country: IT (occurrence: IT)
  Receive Date: 20170626
  Receipt Date: 20171004
  Transmission Date: 20180320
  Serious: Yes (Death, Life-Threatening)
  Sender: FDA-Public Use
  Company Number: IT-TEVA-779660ACC

PATIENT
  Age: 80 Year
  Sex: Male
  Weight: 60 kg

DRUGS (10)
  1. CEFTRIAXONE. [Suspect]
     Active Substance: CEFTRIAXONE
     Indication: INFECTION
     Dosage: 2 GRAM DAILY;
     Route: 042
     Dates: start: 20170330, end: 20170417
  2. METRONIDAZOLO BAXTER O,5% - BAXTER S.P.A. [Suspect]
     Active Substance: METRONIDAZOLE
     Indication: INFECTION
     Dosage: 2 GRAM DAILY;
     Route: 042
     Dates: start: 20170330, end: 20170417
  3. DEXDOR [Concomitant]
     Active Substance: DEXMEDETOMIDINE HYDROCHLORIDE
     Indication: PRODUCT USED FOR UNKNOWN INDICATION
  4. ENOXAPARIN [Concomitant]
     Active Substance: ENOXAPARIN
     Indication: PRODUCT USED FOR UNKNOWN INDICATION
     Route: 058
  5. TARGOSID [Suspect]
     Active Substance: TEICOPLANIN
     Indication: INFECTION
     Dosage: .6 GRAM DAILY;
     Route: 042
     Dates: start: 20170330, end: 20170410
  6. AMOXICILLINA E ACIDO CLAVULANICO IBIGEN - IBIGEN S.R.L. [Suspect]
     Active Substance: AMOXICILLIN\CLAVULANIC ACID
     Indication: INFECTION
     Dosage: 4 GRAM DAILY;
     Route: 042
     Dates: start: 20170330
  7. FUROSEMIDE. [Concomitant]
     Active Substance: FUROSEMIDE
     Indication: PRODUCT USED FOR UNKNOWN INDICATION
  8. PROPOFOL. [Concomitant]
     Active Substance: PROPOFOL
     Indication: PRODUCT USED FOR UNKNOWN INDICATION
  9. REMIFENTANIL [Concomitant]
     Active Substance: REMIFENTANIL
     Indication: PRODUCT USED FOR UNKNOWN INDICATION
  10. METOCLOPRAMIDE. [Concomitant]
     Active Substance: METOCLOPRAMIDE
     Indication: PRODUCT USED FOR UNKNOWN INDICATION

REACTIONS (2)
  - Hyperbilirubinaemia [Fatal]
  - Hepatic failure [Fatal]

NARRATIVE: CASE EVENT DATE: 20170407
